FAERS Safety Report 7583602-3 (Version None)
Quarter: 2011Q2

REPORT INFORMATION
  Report Type: 
  Country: None (occurrence: None)
  Receive Date: 20110630
  Receipt Date: 20110624
  Transmission Date: 20111010
  Serious: Yes (Hospitalization)
  Sender: FDA-Public Use
  Company Number: A0932935A

PATIENT
  Age: 63 Year
  Sex: Female

DRUGS (7)
  1. KLOR-CON [Concomitant]
  2. DIGOXIN [Concomitant]
  3. SYNTHROID [Concomitant]
  4. LASIX [Concomitant]
  5. WARFARIN SODIUM [Concomitant]
  6. COREG CR [Suspect]
     Indication: ATRIAL FIBRILLATION
     Dosage: 40MG PER DAY
     Route: 048
     Dates: start: 20100501
  7. MICARDIS [Concomitant]

REACTIONS (8)
  - RASH [None]
  - C-REACTIVE PROTEIN INCREASED [None]
  - BLOOD GLUCOSE INCREASED [None]
  - CELLULITIS [None]
  - SEPSIS [None]
  - ALANINE AMINOTRANSFERASE INCREASED [None]
  - BLOOD TRIGLYCERIDES INCREASED [None]
  - ANTINUCLEAR ANTIBODY POSITIVE [None]
